FAERS Safety Report 22523808 (Version 1)
Quarter: 2023Q2

REPORT INFORMATION
  Report Type: Spontaneous
  Country: US (occurrence: None)
  Receive Date: 20230606
  Receipt Date: 20230606
  Transmission Date: 20230722
  Serious: No
  Sender: FDA-Public Use
  Company Number: US-Hikma Pharmaceuticals USA Inc.-US-H14001-23-00630

PATIENT
  Age: 57 Year
  Sex: Female
  Weight: 66.67 kg

DRUGS (6)
  1. FLUTICASONE [Suspect]
     Active Substance: FLUTICASONE
     Indication: Upper-airway cough syndrome
     Dosage: 50 MCG EACH NOSTRIL
     Route: 045
  2. FLUTICASONE [Suspect]
     Active Substance: FLUTICASONE
     Indication: Multiple allergies
     Dosage: 50 MCG EACH NOSTRIL
     Route: 045
     Dates: start: 202302, end: 20230212
  3. PROZAC [Concomitant]
     Active Substance: FLUOXETINE HYDROCHLORIDE
     Indication: Product used for unknown indication
     Dosage: UNKNOWN
     Route: 065
  4. SIMVASTATIN [Concomitant]
     Active Substance: SIMVASTATIN
     Indication: Product used for unknown indication
     Dosage: UNKNOWN
     Route: 065
  5. BUSPAR [Concomitant]
     Active Substance: BUSPIRONE HYDROCHLORIDE
     Indication: Product used for unknown indication
     Dosage: UNKNOWN
     Route: 065
  6. B12 VITAMIIN [Concomitant]
     Indication: Anaemia vitamin B12 deficiency
     Dosage: UNKNOWN
     Route: 065

REACTIONS (5)
  - Nasal discomfort [Not Recovered/Not Resolved]
  - Nasal dryness [Unknown]
  - Epistaxis [Unknown]
  - Product use issue [Unknown]
  - Off label use [Unknown]

NARRATIVE: CASE EVENT DATE: 20230210
